FAERS Safety Report 20969695 (Version 2)
Quarter: 2022Q3

REPORT INFORMATION
  Report Type: Spontaneous
  Country: US (occurrence: US)
  Receive Date: 20220616
  Receipt Date: 20220702
  Transmission Date: 20221027
  Serious: Yes (Hospitalization, Other)
  Sender: FDA-Public Use
  Company Number: US-TEVA-2022-US-2045602

PATIENT
  Age: 83 Year
  Sex: Female

DRUGS (8)
  1. DIAZOXIDE [Suspect]
     Active Substance: DIAZOXIDE
     Indication: Hyperinsulinaemic hypoglycaemia
     Dosage: 300 MILLIGRAM DAILY;
     Route: 065
  2. DIAZOXIDE [Suspect]
     Active Substance: DIAZOXIDE
     Dosage: 375 MILLIGRAM DAILY;
     Route: 065
  3. VERAPAMIL [Suspect]
     Active Substance: VERAPAMIL HYDROCHLORIDE
     Indication: Hyperinsulinaemic hypoglycaemia
     Dosage: 80 MILLIGRAM DAILY;
     Route: 065
  4. OCTREOTIDE [Suspect]
     Active Substance: OCTREOTIDE
     Indication: Hyperinsulinaemic hypoglycaemia
     Dosage: 450 MICROGRAM DAILY;
     Route: 065
  5. OCTREOTIDE [Suspect]
     Active Substance: OCTREOTIDE
     Dosage: 1 MILLIGRAM DAILY; LONG ACTING RELEASE
     Route: 030
  6. OCTREOTIDE [Suspect]
     Active Substance: OCTREOTIDE
     Dosage: 1500 MICROGRAM DAILY; IMMEDIATE RELEASE FORMULATION AT THREE TIMES A DAY
     Route: 065
  7. PASIREOTIDE [Suspect]
     Active Substance: PASIREOTIDE
     Indication: Hyperinsulinaemic hypoglycaemia
     Dosage: 1.8 MILLIGRAM DAILY;
     Route: 058
  8. LEVOTHYROXINE [Concomitant]
     Active Substance: LEVOTHYROXINE
     Indication: Hypothyroidism
     Dosage: 50 MICROGRAM DAILY;
     Route: 065

REACTIONS (3)
  - Drug ineffective [Unknown]
  - Facial bones fracture [Unknown]
  - Hip fracture [Unknown]
